FAERS Safety Report 10550696 (Version 3)
Quarter: 2014Q4

REPORT INFORMATION
  Report Type: Spontaneous
  Country: DE (occurrence: DE)
  Receive Date: 20141029
  Receipt Date: 20141229
  Transmission Date: 20150529
  Serious: Yes (Hospitalization, Other)
  Sender: FDA-Public Use
  Company Number: DE-ROCHE-1481950

PATIENT
  Age: 61 Year
  Sex: Male
  Weight: 80 kg

DRUGS (9)
  1. URBASON [Concomitant]
     Active Substance: METHYLPREDNISOLONE
  2. APONAL [Concomitant]
     Active Substance: DOXEPIN HYDROCHLORIDE
  3. XOLAIR [Suspect]
     Active Substance: OMALIZUMAB
     Indication: ALLERGY TO ANIMAL
  4. IDEOS [Concomitant]
     Active Substance: CALCIUM CARBONATE\CHOLECALCIFEROL
  5. MARCUMAR [Concomitant]
     Active Substance: PHENPROCOUMON
  6. EUPHYLONG [Concomitant]
     Active Substance: THEOPHYLLINE ANHYDROUS
  7. VIANI [Concomitant]
     Active Substance: FLUTICASONE PROPIONATE\SALMETEROL XINAFOATE
  8. XOLAIR [Suspect]
     Active Substance: OMALIZUMAB
     Indication: ASTHMA
     Route: 058
     Dates: start: 201401
  9. XOLAIR [Suspect]
     Active Substance: OMALIZUMAB
     Indication: ALLERGY TO PLANTS
     Route: 058
     Dates: start: 201404, end: 201404

REACTIONS (1)
  - Pulmonary fibrosis [Unknown]

NARRATIVE: CASE EVENT DATE: 201404
